FAERS Safety Report 5208219-7 (Version None)
Quarter: 2007Q1

REPORT INFORMATION
  Report Type: 
  Country: None (occurrence: None)
  Receive Date: 20070115
  Receipt Date: 20070111
  Transmission Date: 20070707
  Serious: Yes (Disabling)
  Sender: FDA-Public Use
  Company Number: NZ-GLAXOSMITHKLINE-B0454049A

PATIENT
  Age: 49 Year

DRUGS (2)
  1. AROPAX [Suspect]
     Indication: ANXIETY
     Route: 065
  2. AROPAX [Suspect]
     Indication: DEPRESSION
     Route: 065

REACTIONS (1)
  - TARDIVE DYSKINESIA [None]
